FAERS Safety Report 8262809-6 (Version None)
Quarter: 2012Q1

REPORT INFORMATION
  Report Type: 
  Country: None (occurrence: None)
  Receive Date: 20120327
  Receipt Date: 20081205
  Transmission Date: 20120608
  Serious: Yes (Death, Hospitalization)
  Sender: FDA-Public Use
  Company Number: PHEH2008US10330

PATIENT
  Sex: Male

DRUGS (1)
  1. GLEEVEC [Suspect]
     Indication: NEOPLASM MALIGNANT
     Dosage: UNK
     Dates: start: 20080101

REACTIONS (3)
  - NEOPLASM MALIGNANT [None]
  - DRUG INEFFECTIVE [None]
  - ACUTE MYELOID LEUKAEMIA [None]
